FAERS Safety Report 8976583 (Version 1)
Quarter: 2012Q4

REPORT INFORMATION
  Report Type: 
  Country: US (occurrence: US)
  Receive Date: 20121220
  Receipt Date: 20121220
  Transmission Date: 20130627
  Serious: Yes (Other)
  Sender: FDA-Public Use
  Company Number: CHPA2012US025104

PATIENT
  Age: 68 Year
  Sex: Female

DRUGS (1)
  1. EXCEDRIN PM [Suspect]
     Indication: ARTHRITIS
     Dosage: 1/2 pill daily
     Route: 048

REACTIONS (4)
  - Blood pressure increased [Recovered/Resolved]
  - Off label use [Unknown]
  - Incorrect dose administered [Unknown]
  - Incorrect drug administration duration [Unknown]
